FAERS Safety Report 7478548-5 (Version None)
Quarter: 2011Q2

REPORT INFORMATION
  Report Type: 
  Country: None (occurrence: None)
  Receive Date: 20110513
  Receipt Date: 20110511
  Transmission Date: 20111010
  Serious: Yes (Hospitalization)
  Sender: FDA-Public Use
  Company Number: CA-BAYER-2011-040106

PATIENT
  Age: 64 Year
  Sex: Female

DRUGS (9)
  1. DILAUDID [Concomitant]
  2. GLUCOPHAGE [Concomitant]
  3. EFFEXOR [Concomitant]
  4. NEXAVAR [Suspect]
     Indication: BREAST CANCER METASTATIC
     Dosage: 200 MG, BID
     Route: 048
     Dates: start: 20110217
  5. NAVELBINE [Suspect]
     Indication: BREAST CANCER METASTATIC
     Dosage: 30MG/M2 DAY 1 AND DAY 8
     Route: 042
     Dates: start: 20110217
  6. ASAPHEN [Concomitant]
  7. ECASE [Concomitant]
  8. SYNTHROID [Concomitant]
  9. ATACAND [Concomitant]

REACTIONS (2)
  - FEBRILE NEUTROPENIA [None]
  - DEVICE RELATED INFECTION [None]
